FAERS Safety Report 18737934 (Version 3)
Quarter: 2022Q3

REPORT INFORMATION
  Report Type: Report from Study
  Country: US (occurrence: US)
  Receive Date: 20210113
  Receipt Date: 20220713
  Transmission Date: 20221026
  Serious: No
  Sender: FDA-Public Use
  Company Number: US-VANDA PHARMACEUTICALS, INC-2020TASUS004133

PATIENT
  Sex: Male
  Weight: 76.19 kg

DRUGS (4)
  1. HETLIOZ [Suspect]
     Active Substance: TASIMELTEON
     Indication: Non-24-hour sleep-wake disorder
     Dosage: 20 MG, QD, 1 HOUR BEFORE BEDTIME
     Route: 048
     Dates: end: 20210926
  2. METFORMIN [Concomitant]
     Active Substance: METFORMIN HYDROCHLORIDE
     Indication: Product used for unknown indication
  3. ADDERALL [Concomitant]
     Active Substance: AMPHETAMINE ASPARTATE\AMPHETAMINE SULFATE\DEXTROAMPHETAMINE SACCHARATE\DEXTROAMPHETAMINE SULFATE
     Indication: Product used for unknown indication
     Dosage: 20 MILLIGRAM
  4. ADDERALL [Concomitant]
     Active Substance: AMPHETAMINE ASPARTATE\AMPHETAMINE SULFATE\DEXTROAMPHETAMINE SACCHARATE\DEXTROAMPHETAMINE SULFATE
     Dosage: 7.5 MILLIGRAM

REACTIONS (6)
  - Hypersomnia [Unknown]
  - Lethargy [Unknown]
  - Malaise [Unknown]
  - Insomnia [Unknown]
  - Multiple allergies [Unknown]
  - Product dose omission issue [Unknown]
